FAERS Safety Report 7001050-1 (Version None)
Quarter: 2010Q3

REPORT INFORMATION
  Report Type: 
  Country: None (occurrence: None)
  Receive Date: 20100920
  Receipt Date: 20070613
  Transmission Date: 20110219
  Serious: Yes (Other)
  Sender: FDA-Public Use
  Company Number: US-ASTRAZENECA-2006UW24218

PATIENT
  Age: 14900 Day
  Sex: Female
  Weight: 73.5 kg

DRUGS (13)
  1. SEROQUEL [Suspect]
     Indication: SCHIZOPHRENIA
     Dosage: STRENGTH - 100 MG, 300 MG, 600 MG  DOSE - 100 MG- 600 MG DAILY
     Route: 048
     Dates: start: 20031124
  2. SEROQUEL [Suspect]
     Indication: BIPOLAR DISORDER
     Dosage: STRENGTH - 100 MG, 300 MG, 600 MG  DOSE - 100 MG- 600 MG DAILY
     Route: 048
     Dates: start: 20031124
  3. SEROQUEL [Suspect]
     Indication: OBSESSIVE-COMPULSIVE DISORDER
     Dosage: STRENGTH - 100 MG, 300 MG, 600 MG  DOSE - 100 MG- 600 MG DAILY
     Route: 048
     Dates: start: 20031124
  4. SEROQUEL [Suspect]
     Route: 048
  5. SEROQUEL [Suspect]
     Route: 048
  6. SEROQUEL [Suspect]
     Route: 048
  7. OLANZAPINE [Concomitant]
  8. LITHIUM CARBONATE [Concomitant]
     Route: 048
     Dates: start: 20031124
  9. BUSPAR [Concomitant]
     Dates: start: 20060417
  10. ALPRAZOLAM [Concomitant]
     Dosage: STRENGTH - 2 MG, 3 MG  DOSE - 2 MG- 9 MG DAILY
     Route: 048
     Dates: start: 20060417
  11. BENZTROPINE MESYLATE [Concomitant]
     Dates: start: 20060417
  12. DILANTIN [Concomitant]
     Dates: start: 20060417
  13. PROTONIX [Concomitant]
     Dates: start: 20060417

REACTIONS (3)
  - INSULIN-REQUIRING TYPE 2 DIABETES MELLITUS [None]
  - PANCREATITIS [None]
  - TYPE 2 DIABETES MELLITUS [None]
